FAERS Safety Report 5472285-4 (Version None)
Quarter: 2007Q3

REPORT INFORMATION
  Report Type: 
  Country: None (occurrence: None)
  Receive Date: 20070925
  Receipt Date: 20070914
  Transmission Date: 20080115
  Serious: Yes (Hospitalization)
  Sender: FDA-Public Use
  Company Number: GXBR2007US01608

PATIENT
  Age: 80 Year
  Sex: Female
  Weight: 40.8 kg

DRUGS (10)
  1. RIFAMPIN [Suspect]
     Indication: BACTERIAL INFECTION
     Dosage: 300 MG, TIW, ORAL
     Route: 048
     Dates: start: 20070801
  2. ETHAMBUTOL HYDROCHLORIDE [Concomitant]
  3. AZITHROMYCIN [Concomitant]
  4. CLONIDINE [Concomitant]
  5. NORVASC [Concomitant]
  6. NADOLOL [Concomitant]
  7. LANOXIN [Concomitant]
  8. ACIPHEX [Concomitant]
  9. ASPIRIN [Concomitant]
  10. LORAZEPAM [Concomitant]

REACTIONS (6)
  - DYSPEPSIA [None]
  - FLATULENCE [None]
  - HEART RATE INCREASED [None]
  - HEART RATE IRREGULAR [None]
  - HYPERTENSION [None]
  - NAUSEA [None]
